FAERS Safety Report 6615043-7 (Version None)
Quarter: 2010Q1

REPORT INFORMATION
  Report Type: 
  Country: None (occurrence: None)
  Receive Date: 20100305
  Receipt Date: 20081015
  Transmission Date: 20100710
  Serious: No
  Sender: FDA-Public Use
  Company Number: US-BAYER-200837350NA

PATIENT
  Age: 28 Year
  Sex: Female
  Weight: 60 kg

DRUGS (5)
  1. MAGNEVIST [Suspect]
     Indication: NUCLEAR MAGNETIC RESONANCE IMAGING BRAIN
     Dosage: TOTAL DAILY DOSE: 12.08 ML  UNIT DOSE: 100 ML
     Route: 042
     Dates: start: 20081015, end: 20081015
  2. ALBUTEROL SULATE [Concomitant]
     Route: 055
  3. KEPPRA [Concomitant]
  4. SYNTHROID [Concomitant]
  5. FENTANYL [Concomitant]

REACTIONS (5)
  - CHEST DISCOMFORT [None]
  - ERYTHEMA [None]
  - GINGIVAL DISORDER [None]
  - OROPHARYNGEAL DISCOMFORT [None]
  - PRURITUS [None]
